FAERS Safety Report 4463808-2 (Version None)
Quarter: 2004Q4

REPORT INFORMATION
  Report Type: 
  Country: None (occurrence: None)
  Receive Date: 20041001
  Receipt Date: 20040921
  Transmission Date: 20050328
  Serious: Yes (Hospitalization)
  Sender: FDA-Public Use
  Company Number: PHHO2004US13271

PATIENT
  Age: 70 Year
  Sex: Male
  Weight: 121 kg

DRUGS (4)
  1. GLEEVEC [Suspect]
     Indication: GASTROINTESTINAL STROMAL TUMOUR
     Dosage: 400 MG, QD
     Route: 048
     Dates: start: 20040212
  2. COREG [Suspect]
  3. BENAZEPRIL HCL [Suspect]
  4. TRIAMTERENE AND HYDROCHLOROTHIAZIDE [Suspect]

REACTIONS (4)
  - ARRHYTHMIA SUPRAVENTRICULAR [None]
  - CHEST PAIN [None]
  - NODAL ARRHYTHMIA [None]
  - SINUS TACHYCARDIA [None]
